FAERS Safety Report 16698847 (Version 1)
Quarter: 2019Q3

REPORT INFORMATION
  Report Type: Spontaneous
  Country: US (occurrence: US)
  Receive Date: 20190813
  Receipt Date: 20190813
  Transmission Date: 20191004
  Serious: Yes (Other)
  Sender: FDA-Public Use
  Company Number: US-AMGEN-USASP2019125499

PATIENT
  Age: 55 Year
  Sex: Male
  Weight: 124 kg

DRUGS (1)
  1. PROCRIT [Suspect]
     Active Substance: ERYTHROPOIETIN
     Indication: ANAEMIA OF CHRONIC DISEASE
     Dosage: UNK UNK, QWK (50000 U/VIAL)
     Route: 058
     Dates: start: 20190523

REACTIONS (3)
  - Cough [Not Recovered/Not Resolved]
  - Ascites [Not Recovered/Not Resolved]
  - Off label use [Unknown]

NARRATIVE: CASE EVENT DATE: 20190523
